FAERS Safety Report 14426649 (Version 1)
Quarter: 2018Q1

REPORT INFORMATION
  Report Type: Spontaneous
  Country: US (occurrence: US)
  Receive Date: 20180123
  Receipt Date: 20180123
  Transmission Date: 20180509
  Serious: No
  Sender: FDA-Public Use
  Company Number: US-ROCHE-2004617

PATIENT
  Sex: Female

DRUGS (1)
  1. OCREVUS [Suspect]
     Active Substance: OCRELIZUMAB
     Indication: MULTIPLE SCLEROSIS
     Dosage: LAST INFUSION OF OCRELIZUMAB RECEIVED ON 24/JUL/2017
     Route: 042
     Dates: start: 2017

REACTIONS (3)
  - Rash [Unknown]
  - Systemic lupus erythematosus [Unknown]
  - Dermatitis [Unknown]

NARRATIVE: CASE EVENT DATE: 2017
